FAERS Safety Report 25242544 (Version 1)
Quarter: 2025Q2

REPORT INFORMATION
  Report Type: Spontaneous
  Country: US (occurrence: US)
  Receive Date: 20250427
  Receipt Date: 20250427
  Transmission Date: 20250716
  Serious: No
  Sender: EXELA PHARMA SCIENCES
  Company Number: US-EXELAPHARMA-2025EXLA00044

PATIENT
  Age: 45 Year
  Sex: Female

DRUGS (5)
  1. SODIUM BICARBONATE [Suspect]
     Active Substance: SODIUM BICARBONATE
     Indication: Parenteral nutrition
     Dosage: ONE TIME TREATMENT
     Route: 042
     Dates: start: 20250324, end: 20250325
  2. PROGESTERONE [Concomitant]
     Active Substance: PROGESTERONE
  3. GLUTATHIONE [Concomitant]
     Active Substance: GLUTATHIONE
  4. FLOMAX [Concomitant]
     Active Substance: TAMSULOSIN HYDROCHLORIDE
  5. NP THYROID [Concomitant]
     Active Substance: LEVOTHYROXINE\LIOTHYRONINE

REACTIONS (6)
  - Feeling hot [Recovered/Resolved]
  - Paraesthesia [Recovered/Resolved]
  - Lip pruritus [Recovered/Resolved]
  - Flushing [Recovered/Resolved]
  - Nervousness [Recovered/Resolved]
  - Feeling jittery [Recovered/Resolved]

NARRATIVE: CASE EVENT DATE: 20240324
